APPROVED DRUG PRODUCT: FAMOTIDINE
Active Ingredient: FAMOTIDINE
Strength: 10MG
Dosage Form/Route: TABLET;ORAL
Application: A075610 | Product #001
Applicant: APOTEX INC
Approved: Mar 12, 2002 | RLD: No | RS: No | Type: DISCN